FAERS Safety Report 19364379 (Version 3)
Quarter: 2021Q3

REPORT INFORMATION
  Report Type: Spontaneous
  Country: AR (occurrence: AR)
  Receive Date: 20210602
  Receipt Date: 20210706
  Transmission Date: 20211014
  Serious: No
  Sender: FDA-Public Use
  Company Number: AR-LUPIN PHARMACEUTICALS INC.-2020-11819

PATIENT
  Age: 32 Year
  Sex: Female

DRUGS (8)
  1. CALCIUM [Suspect]
     Active Substance: CALCIUM
     Indication: DIALYSIS
     Dosage: UNK 3 MEQ/L
     Route: 065
  2. SODIUM HEPARIN [Suspect]
     Active Substance: HEPARIN SODIUM
     Dosage: 2500 INTERNATIONAL UNIT?AT A RATE OF 500 IU/HOUR
     Route: 065
  3. SODIUM [Suspect]
     Active Substance: SODIUM
     Indication: DIALYSIS
     Dosage: 136 MILLIEQUIVALENT
     Route: 065
  4. POTASSIUM [Suspect]
     Active Substance: POTASSIUM
     Indication: DIALYSIS
     Dosage: UNK 3.5 MEQ/L
     Route: 065
  5. BICARBONATE [Suspect]
     Active Substance: SODIUM BICARBONATE
     Dosage: UNK 28 MEQ/L
     Route: 065
  6. SODIUM HEPARIN [Suspect]
     Active Substance: HEPARIN SODIUM
     Indication: ANTICOAGULANT THERAPY
     Dosage: 5000 INTERNATIONAL UNIT0UNTIL 16 WEEKS
     Route: 065
  7. BICARBONATE [Suspect]
     Active Substance: SODIUM BICARBONATE
     Indication: DIALYSIS
     Dosage: UNK
     Route: 065
  8. LABETALOL [Suspect]
     Active Substance: LABETALOL\LABETALOL HYDROCHLORIDE
     Indication: BLOOD PRESSURE ABNORMAL
     Dosage: 100 MILLIGRAM, QD
     Route: 048

REACTIONS (1)
  - Exposure during pregnancy [Unknown]
